FAERS Safety Report 7632999-4 (Version None)
Quarter: 2011Q3

REPORT INFORMATION
  Report Type: 
  Country: None (occurrence: None)
  Receive Date: 20110725
  Receipt Date: 20110719
  Transmission Date: 20111222
  Serious: Yes (Death)
  Sender: FDA-Public Use
  Company Number: PHHY2011US65691

PATIENT
  Age: 54 Year
  Sex: Male

DRUGS (4)
  1. TARCEVA [Concomitant]
  2. XELODA [Concomitant]
  3. ZOMETA [Suspect]
  4. GEMZAR [Concomitant]

REACTIONS (1)
  - METASTATIC NEOPLASM [None]
